FAERS Safety Report 23925873 (Version 3)
Quarter: 2024Q3

REPORT INFORMATION
  Report Type: Spontaneous
  Country: JP (occurrence: JP)
  Receive Date: 20240531
  Receipt Date: 20240708
  Transmission Date: 20241017
  Serious: Yes (Death)
  Sender: EMD SERONO INC
  Company Number: JP-Merck Healthcare KGaA-2024029482

PATIENT
  Age: 87 Year
  Sex: Male

DRUGS (1)
  1. BAVENCIO [Suspect]
     Active Substance: AVELUMAB
     Indication: Transitional cell carcinoma metastatic
     Route: 041
     Dates: start: 20221124, end: 20230216

REACTIONS (1)
  - Disease progression [Fatal]

NARRATIVE: CASE EVENT DATE: 20230127
